FAERS Safety Report 15498494 (Version 1)
Quarter: 2018Q4

REPORT INFORMATION
  Report Type: Spontaneous
  Country: FR (occurrence: FR)
  Receive Date: 20181015
  Receipt Date: 20181015
  Transmission Date: 20190205
  Serious: Yes (Hospitalization, Other)
  Sender: FDA-Public Use
  Company Number: PHHY2018FR121998

PATIENT
  Age: 85 Year
  Sex: Male
  Weight: 85 kg

DRUGS (26)
  1. SODIUM OXYBATE. [Suspect]
     Active Substance: SODIUM OXYBATE
     Dosage: 7 G, UNK(TWICE NIGHTLY)
     Route: 048
     Dates: start: 20100503, end: 20100511
  2. SODIUM OXYBATE. [Suspect]
     Active Substance: SODIUM OXYBATE
     Dosage: TWICE NIGHTLY
     Route: 048
     Dates: start: 20100102
  3. SODIUM OXYBATE. [Suspect]
     Active Substance: SODIUM OXYBATE
     Dosage: 6 G, UNK(TWICE NIGHTLY  )
     Route: 048
     Dates: start: 20100418, end: 20180428
  4. SODIUM OXYBATE. [Suspect]
     Active Substance: SODIUM OXYBATE
     Dosage: (4.5 GRAMS + 3.5 GRAM TWICE NIGHTLY)
     Route: 048
     Dates: start: 20110423, end: 201104
  5. CANNABIS SATIVA [Suspect]
     Active Substance: CANNABIS SATIVA SUBSP. SATIVA FLOWERING TOP
     Indication: PRODUCT USED FOR UNKNOWN INDICATION
     Dosage: UNK
     Route: 065
  6. ABILIFY [Concomitant]
     Active Substance: ARIPIPRAZOLE
     Indication: PRODUCT USED FOR UNKNOWN INDICATION
     Dosage: UNK
     Route: 065
  7. RISPERDAL [Concomitant]
     Active Substance: RISPERIDONE
     Indication: PRODUCT USED FOR UNKNOWN INDICATION
     Dosage: UNK
     Route: 065
  8. SODIUM OXYBATE. [Suspect]
     Active Substance: SODIUM OXYBATE
     Dosage: 7 G, QHS(NIGHTLY)
     Route: 048
     Dates: start: 20111212, end: 20111222
  9. XYREM [Suspect]
     Active Substance: SODIUM OXYBATE
     Dosage: UNK
     Route: 048
  10. RITALINE [Suspect]
     Active Substance: METHYLPHENIDATE HYDROCHLORIDE
     Indication: PRODUCT USED FOR UNKNOWN INDICATION
     Route: 048
  11. SODIUM OXYBATE. [Suspect]
     Active Substance: SODIUM OXYBATE
     Indication: CATAPLEXY
     Dosage: UNK
     Route: 048
  12. SODIUM OXYBATE. [Suspect]
     Active Substance: SODIUM OXYBATE
     Dosage: 6.5 G, UNK (TWICE NIGHTLY)
     Route: 048
     Dates: start: 20100415, end: 20100417
  13. SODIUM OXYBATE. [Suspect]
     Active Substance: SODIUM OXYBATE
     Dosage: 9 G, UNK(TWICE NIGHTLY)
     Route: 048
     Dates: start: 20111229
  14. SODIUM OXYBATE. [Suspect]
     Active Substance: SODIUM OXYBATE
     Dosage: TWICE NIGHTLY
     Route: 048
     Dates: start: 20100418, end: 20100428
  15. CONCERTA [Concomitant]
     Active Substance: METHYLPHENIDATE HYDROCHLORIDE
     Indication: PRODUCT USED FOR UNKNOWN INDICATION
     Dosage: UNK
     Route: 048
  16. MODIODAL [Concomitant]
     Active Substance: MODAFINIL
     Indication: NARCOLEPSY
     Dosage: 3 OT, UNK
     Dates: start: 200907
  17. SODIUM OXYBATE. [Suspect]
     Active Substance: SODIUM OXYBATE
     Dosage: UNK
     Route: 048
     Dates: start: 201009, end: 201010
  18. XYREM [Suspect]
     Active Substance: SODIUM OXYBATE
     Indication: NARCOLEPSY
     Dosage: 6.5 G, UNK(TWICE NIGHTLY)
     Route: 048
     Dates: start: 20100429, end: 20100502
  19. SODIUM OXYBATE. [Suspect]
     Active Substance: SODIUM OXYBATE
     Dosage: UNK
     Route: 048
     Dates: start: 20101118, end: 20111211
  20. SODIUM OXYBATE. [Suspect]
     Active Substance: SODIUM OXYBATE
     Dosage: (3.75 + 3.50 G NIGHTLY)
     Route: 048
  21. SODIUM OXYBATE. [Suspect]
     Active Substance: SODIUM OXYBATE
     Dosage: TWICE NIGHTLY
     Route: 048
     Dates: start: 20090807, end: 20100101
  22. SODIUM OXYBATE. [Suspect]
     Active Substance: SODIUM OXYBATE
     Dosage: 4.5 G, UNK(TWICE NIGHTLY )
     Route: 048
     Dates: start: 20090807, end: 20100101
  23. XYREM [Suspect]
     Active Substance: SODIUM OXYBATE
     Indication: CATAPLEXY
     Dosage: UNK
     Route: 048
  24. SODIUM OXYBATE. [Suspect]
     Active Substance: SODIUM OXYBATE
     Dosage: 5 G, UNK(TWICE NIGHTLY )
     Route: 048
     Dates: start: 20100102
  25. SODIUM OXYBATE. [Suspect]
     Active Substance: SODIUM OXYBATE
     Dosage: 4.5 GRAMS + 3.5 GRAM TWICE NIGHTLY
     Route: 048
     Dates: start: 20111223, end: 201112
  26. XYREM [Suspect]
     Active Substance: SODIUM OXYBATE
     Dosage: 3.50 GRAM TWICE NIGHTLY OR 7.75 GRAMS NIGHTLY
     Route: 048
     Dates: start: 20100511, end: 20100607

REACTIONS (12)
  - Palpitations [Recovered/Resolved]
  - Nervousness [Recovered/Resolved]
  - Psychotic disorder [Recovered/Resolved]
  - Anxiety disorder [Recovered/Resolved]
  - Delusion [Recovered/Resolved]
  - Anxiety [Recovered/Resolved]
  - Stress [Unknown]
  - Suicidal ideation [Unknown]
  - Thinking abnormal [Unknown]
  - Delirium [Recovered/Resolved]
  - Hallucination, auditory [Unknown]
  - Mental impairment [Unknown]

NARRATIVE: CASE EVENT DATE: 2010
